FAERS Safety Report 7542835-2 (Version None)
Quarter: 2011Q2

REPORT INFORMATION
  Report Type: 
  Country: None (occurrence: None)
  Receive Date: 20110613
  Receipt Date: 20110601
  Transmission Date: 20111010
  Serious: Yes (Hospitalization)
  Sender: FDA-Public Use
  Company Number: DE-TEVA-285129GER

PATIENT
  Sex: Female

DRUGS (10)
  1. GRANISETRON [Concomitant]
  2. CETUXIMAB [Suspect]
     Indication: COLORECTAL CANCER
     Dosage: 29.6667 MILLIGRAM; 445 MG EVERY 2 WEEKS
     Route: 042
     Dates: start: 20101202, end: 20110101
  3. ALOXI [Concomitant]
     Dates: start: 20101202
  4. IRINOTECAN HCL [Suspect]
     Indication: COLORECTAL CANCER
     Dosage: 21.3333 MILLIGRAM; 320 MG EVERY 2 WEEKS
     Route: 042
     Dates: start: 20101202, end: 20110101
  5. METFORMIN HCL [Concomitant]
  6. FLUOROURACIL [Suspect]
     Indication: COLORECTAL CANCER
     Dosage: 283.3333 MILLIGRAM; 4250 MG EVERY 2 WEEKS
     Route: 040
     Dates: start: 20101202
  7. LOPERAMIDE [Concomitant]
  8. RAMIPRIL [Concomitant]
  9. LEUCOVORIN CALCIUM [Suspect]
     Indication: COLORECTAL CANCER
     Dosage: 46.6667 MILLIGRAM; 700 MG EVERY 2 WEEKS
     Route: 042
     Dates: start: 20101202, end: 20110101
  10. METOPROLOL SUCCINATE [Concomitant]

REACTIONS (2)
  - CAMPYLOBACTER INFECTION [None]
  - DIARRHOEA [None]
